FAERS Safety Report 4690900-X (Version None)
Quarter: 2005Q2

REPORT INFORMATION
  Report Type: 
  Country: None (occurrence: None)
  Receive Date: 20050610
  Receipt Date: 20050531
  Transmission Date: 20051028
  Serious: Yes (Death)
  Sender: FDA-Public Use
  Company Number: B0383454A

PATIENT
  Sex: 0

DRUGS (1)
  1. EPIVIR-HBV [Suspect]
     Indication: HEPATITIS B
     Dosage: 100 MG/PER DAY

REACTIONS (1)
  - HEPATIC FAILURE [None]
